FAERS Safety Report 9245040 (Version 1)
Quarter: 2013Q2

REPORT INFORMATION
  Report Type: Spontaneous
  Country: JP (occurrence: JP)
  Receive Date: 20130422
  Receipt Date: 20130422
  Transmission Date: 20140414
  Serious: Yes (Hospitalization)
  Sender: FDA-Public Use
  Company Number: JP-BAYER-2013-048336

PATIENT
  Age: 81 Year
  Sex: Female

DRUGS (2)
  1. NEXAVAR [Suspect]
     Indication: HEPATOCELLULAR CARCINOMA
     Dosage: 400 MG, QD
     Route: 048
     Dates: start: 20120626
  2. NEO-MINOPHAGEN C [Suspect]

REACTIONS (2)
  - Hypertension [Recovered/Resolved]
  - Inappropriate antidiuretic hormone secretion [Recovered/Resolved]
